FAERS Safety Report 4882369-7 (Version None)
Quarter: 2006Q1

REPORT INFORMATION
  Report Type: 
  Country: None (occurrence: None)
  Receive Date: 20060117
  Receipt Date: 20060106
  Transmission Date: 20060701
  Serious: Yes (Hospitalization)
  Sender: FDA-Public Use
  Company Number: JP-ROCHE-431561

PATIENT
  Age: 5 Year
  Sex: Male

DRUGS (2)
  1. ROCEPHIN [Suspect]
     Indication: MENINGITIS
     Route: 042
     Dates: start: 20051206, end: 20051222
  2. CARBENIN [Concomitant]
     Route: 041

REACTIONS (1)
  - CHOLANGITIS [None]
